FAERS Safety Report 17032890 (Version 1)
Quarter: 2019Q4

REPORT INFORMATION
  Report Type: Spontaneous
  Country: DE (occurrence: DE)
  Receive Date: 20191114
  Receipt Date: 20191114
  Transmission Date: 20200122
  Serious: Yes (Hospitalization, Other)
  Sender: FDA-Public Use
  Company Number: DE-SA-2019SA312980

PATIENT
  Sex: Male

DRUGS (1)
  1. TAMSULOSINE HCL ZENTIVA [Suspect]
     Active Substance: TAMSULOSIN HYDROCHLORIDE
     Dosage: UNK
     Dates: start: 201909

REACTIONS (4)
  - Diarrhoea [Unknown]
  - Guillain-Barre syndrome [Unknown]
  - Gait inability [Not Recovered/Not Resolved]
  - Hypoaesthesia [Unknown]

NARRATIVE: CASE EVENT DATE: 201909
